FAERS Safety Report 14582311 (Version 1)
Quarter: 2018Q1

REPORT INFORMATION
  Report Type: Spontaneous
  Country: US (occurrence: US)
  Receive Date: 20180228
  Receipt Date: 20180228
  Transmission Date: 20180509
  Serious: No
  Sender: FDA-Public Use
  Company Number: US-VIFOR (INTERNATIONAL) INC.-VIT-2018-01281

PATIENT
  Age: 87 Year
  Sex: Female

DRUGS (18)
  1. LIPITOR [Concomitant]
     Active Substance: ATORVASTATIN CALCIUM
     Route: 048
  2. COSOPT [Concomitant]
     Active Substance: DORZOLAMIDE HYDROCHLORIDE\TIMOLOL MALEATE
     Dosage: 22.3-6.8 MG/ML.
     Dates: start: 20170627
  3. COD-LIVER OIL [Concomitant]
     Active Substance: FISH OIL
     Route: 048
     Dates: start: 20170627
  4. ASA [Concomitant]
     Active Substance: ASPIRIN
     Dates: start: 20170627
  5. MIRCERA [Suspect]
     Active Substance: METHOXY POLYETHYLENE GLYCOL-EPOETIN BETA
     Route: 042
     Dates: start: 20171219
  6. HYDRALAZINE [Concomitant]
     Active Substance: HYDRALAZINE HYDROCHLORIDE
     Route: 048
  7. MIRCERA [Suspect]
     Active Substance: METHOXY POLYETHYLENE GLYCOL-EPOETIN BETA
     Route: 042
     Dates: start: 20171218
  8. XALATAN [Concomitant]
     Active Substance: LATANOPROST
     Dosage: BOTH EYES.
     Dates: start: 20170627
  9. OCUVITE [Concomitant]
     Active Substance: VITAMINS
  10. LIQUACEL [Concomitant]
  11. VENOFER [Suspect]
     Active Substance: IRON SUCROSE
     Indication: PRODUCT USED FOR UNKNOWN INDICATION
     Route: 042
     Dates: start: 20170615
  12. NORVASC [Concomitant]
     Active Substance: AMLODIPINE BESYLATE
     Route: 048
     Dates: start: 20170627
  13. MIRCERA [Suspect]
     Active Substance: METHOXY POLYETHYLENE GLYCOL-EPOETIN BETA
     Route: 042
     Dates: start: 20171212
  14. VENOFER [Suspect]
     Active Substance: IRON SUCROSE
     Route: 042
     Dates: start: 20171209
  15. DEMADEX [Concomitant]
     Active Substance: TORSEMIDE
     Dates: start: 20170627
  16. MIRCERA [Suspect]
     Active Substance: METHOXY POLYETHYLENE GLYCOL-EPOETIN BETA
     Indication: ANAEMIA
     Dosage: 50 MCG/0.3 ML.
     Route: 042
     Dates: start: 20171110
  17. ENGERIX-B [Concomitant]
     Active Substance: HEPATITIS B VIRUS SUBTYPE ADW2 HBSAG SURFACE PROTEIN ANTIGEN
     Route: 030
     Dates: start: 20171223
  18. TAPAZOLE [Concomitant]
     Active Substance: METHIMAZOLE
     Route: 048
     Dates: start: 20170627

REACTIONS (2)
  - Inappropriate schedule of drug administration [Unknown]
  - No adverse event [Recovered/Resolved]
